FAERS Safety Report 8593399-6 (Version None)
Quarter: 2012Q3

REPORT INFORMATION
  Report Type: 
  Country: None (occurrence: None)
  Receive Date: 20120814
  Receipt Date: 20120808
  Transmission Date: 20120928
  Serious: Yes (Hospitalization)
  Sender: FDA-Public Use
  Company Number: PHHY2011DE103546

PATIENT
  Sex: Female

DRUGS (1)
  1. GILENYA [Suspect]
     Indication: MULTIPLE SCLEROSIS
     Dosage: 0.5 MG, DAILY
     Route: 048
     Dates: start: 20111109

REACTIONS (6)
  - CENTRAL NERVOUS SYSTEM LESION [None]
  - GASTROENTERITIS VIRAL [None]
  - RASH [None]
  - PARAESTHESIA [None]
  - LIP DRY [None]
  - BLADDER DISORDER [None]
